FAERS Safety Report 7964321-8 (Version None)
Quarter: 2011Q4

REPORT INFORMATION
  Report Type: 
  Country: None (occurrence: None)
  Receive Date: 20111208
  Receipt Date: 20111128
  Transmission Date: 20120403
  Serious: Yes (Other)
  Sender: FDA-Public Use
  Company Number: US-BAYER-2011-040053

PATIENT
  Age: 34 Year
  Sex: Female
  Weight: 58.957 kg

DRUGS (1)
  1. YAZ [Suspect]
     Indication: CONTRACEPTION
     Dosage: UNK
     Route: 048
     Dates: start: 20090101, end: 20091001

REACTIONS (5)
  - PAIN [None]
  - CHOLECYSTITIS [None]
  - INJURY [None]
  - GALLBLADDER INJURY [None]
  - BILIARY DYSKINESIA [None]
